FAERS Safety Report 9646273 (Version 1)
Quarter: 2013Q4

REPORT INFORMATION
  Report Type: Spontaneous
  Country: GB (occurrence: None)
  Receive Date: 20131024
  Receipt Date: 20131024
  Transmission Date: 20140711
  Serious: Yes (Other)
  Sender: FDA-Public Use
  Company Number: AUR-APL-2013-08692

PATIENT
  Age: 14 Year
  Sex: Male

DRUGS (1)
  1. OLANZAPINE [Suspect]
     Indication: BIPOLAR DISORDER
     Dosage: UNKNOWN

REACTIONS (8)
  - Product substitution issue [None]
  - Mental impairment [None]
  - Agitation [None]
  - Aggression [None]
  - Disinhibition [None]
  - Insomnia [None]
  - Drug effect decreased [None]
  - Economic problem [None]
